FAERS Safety Report 7954799-8 (Version None)
Quarter: 2011Q4

REPORT INFORMATION
  Report Type: 
  Country: None (occurrence: None)
  Receive Date: 20111202
  Receipt Date: 20111123
  Transmission Date: 20120403
  Serious: Yes (Hospitalization, Congenital Anomaly, Other)
  Sender: FDA-Public Use
  Company Number: US-ABBOTT-08P-163-0470443-00

PATIENT
  Sex: Male
  Weight: 1.703 kg

DRUGS (1)
  1. HUMIRA [Suspect]
     Indication: MATERNAL EXPOSURE TIMING UNSPECIFIED
     Route: 064

REACTIONS (12)
  - ADVERSE DRUG REACTION [None]
  - FOETAL EXPOSURE DURING PREGNANCY [None]
  - ABSCESS [None]
  - FEEDING DISORDER NEONATAL [None]
  - STAPHYLOCOCCAL INFECTION [None]
  - HYPOTONIA [None]
  - BICUSPID AORTIC VALVE [None]
  - CARDIAC DISORDER [None]
  - CONGENITAL CENTRAL NERVOUS SYSTEM ANOMALY [None]
  - PREMATURE BABY [None]
  - DEVELOPMENTAL DELAY [None]
  - LOW BIRTH WEIGHT BABY [None]
